FAERS Safety Report 9773859 (Version 2)
Quarter: 2014Q1

REPORT INFORMATION
  Report Type: Report from Study
  Country: FR (occurrence: FR)
  Receive Date: 20131220
  Receipt Date: 20140131
  Transmission Date: 20141002
  Serious: Yes (Hospitalization, Other)
  Sender: FDA-Public Use
  Company Number: FR-ROCHE-1318267

PATIENT
  Sex: Female

DRUGS (13)
  1. RITUXIMAB [Suspect]
     Indication: RHEUMATOID ARTHRITIS
     Route: 041
     Dates: start: 20071112
  2. RITUXIMAB [Suspect]
     Route: 041
     Dates: start: 20071126
  3. RITUXIMAB [Suspect]
     Route: 041
     Dates: start: 20090318
  4. RITUXIMAB [Suspect]
     Route: 041
     Dates: start: 20090402
  5. RITUXIMAB [Suspect]
     Route: 041
     Dates: start: 20100728
  6. RITUXIMAB [Suspect]
     Route: 041
     Dates: start: 20100811
  7. PARACETAMOL [Concomitant]
  8. SOLU-MEDROL [Concomitant]
     Route: 065
  9. METHYLPREDNISOLONE [Concomitant]
     Route: 065
  10. CORTANCYL [Concomitant]
     Dosage: 2 MG/D
     Route: 065
  11. CORTANCYL [Concomitant]
     Dosage: 3 MG/D
     Route: 065
  12. CORTANCYL [Concomitant]
     Dosage: 5 MG/D
     Route: 065
  13. METHOTREXATE [Concomitant]
     Route: 065

REACTIONS (7)
  - Diabetes mellitus inadequate control [Not Recovered/Not Resolved]
  - Asthenia [Not Recovered/Not Resolved]
  - Major depression [Not Recovered/Not Resolved]
  - Haematoma infection [Recovered/Resolved]
  - Pyrexia [Recovered/Resolved]
  - Oropharyngeal pain [Not Recovered/Not Resolved]
  - Odynophagia [Recovered/Resolved]
